FAERS Safety Report 23810129 (Version 1)
Quarter: 2024Q2

REPORT INFORMATION
  Report Type: Spontaneous
  Country: US (occurrence: US)
  Receive Date: 20240502
  Receipt Date: 20240502
  Transmission Date: 20240716
  Serious: No
  Sender: FDA-Public Use
  Company Number: US-GUERBET / LLC-US-20240027

PATIENT
  Age: 21 Year

DRUGS (1)
  1. DOTAREM [Suspect]
     Active Substance: GADOTERATE MEGLUMINE
     Indication: Product used for unknown indication
     Dosage: UNIT DOSE= 11 UNIT (UNSPECIFIED).
     Dates: start: 20240203, end: 20240203

REACTIONS (1)
  - Macule [Unknown]

NARRATIVE: CASE EVENT DATE: 20240203
